FAERS Safety Report 21953118 (Version 5)
Quarter: 2023Q1

REPORT INFORMATION
  Report Type: Report from Study
  Country: US (occurrence: US)
  Receive Date: 20230204
  Receipt Date: 20230328
  Transmission Date: 20230417
  Serious: No
  Sender: FDA-Public Use
  Company Number: US-002147023-NVSC2023US024070

PATIENT
  Sex: Female

DRUGS (2)
  1. PIQRAY [Suspect]
     Active Substance: ALPELISIB
     Indication: Product used for unknown indication
     Dosage: UNK
     Route: 065
  2. PIQRAY [Suspect]
     Active Substance: ALPELISIB
     Dosage: 150 MG, QD
     Route: 065

REACTIONS (9)
  - Oral pain [Unknown]
  - Pain in extremity [Unknown]
  - Abdominal discomfort [Unknown]
  - Fall [Unknown]
  - Epistaxis [Unknown]
  - Tumour marker decreased [Unknown]
  - Stomatitis [Unknown]
  - Taste disorder [Unknown]
  - Cough [Unknown]
